FAERS Safety Report 24686306 (Version 2)
Quarter: 2024Q4

REPORT INFORMATION
  Report Type: Spontaneous
  Country: US (occurrence: US)
  Receive Date: 20241202
  Receipt Date: 20241219
  Transmission Date: 20250115
  Serious: Yes (Hospitalization)
  Sender: ELI LILLY AND COMPANY
  Company Number: US-ELI_LILLY_AND_COMPANY-US202411015647

PATIENT

DRUGS (2)
  1. DONANEMAB [Suspect]
     Active Substance: DONANEMAB
     Indication: Dementia Alzheimer^s type
     Dosage: 700 MG, UNKNOWN
     Route: 042
     Dates: start: 20241001
  2. DONANEMAB [Suspect]
     Active Substance: DONANEMAB
     Dosage: 700 MG, UNKNOWN
     Route: 042
     Dates: start: 20241101

REACTIONS (1)
  - Amyloid related imaging abnormality-oedema/effusion [Unknown]

NARRATIVE: CASE EVENT DATE: 20241107
